FAERS Safety Report 10168398 (Version 1)
Quarter: 2014Q2

REPORT INFORMATION
  Report Type: Spontaneous
  Country: FR (occurrence: FR)
  Receive Date: 20140513
  Receipt Date: 20140513
  Transmission Date: 20141212
  Serious: Yes (Hospitalization)
  Sender: FDA-Public Use
  Company Number: FR-ROCHE-1397348

PATIENT
  Age: 38 Year
  Sex: Female

DRUGS (13)
  1. MABTHERA [Suspect]
     Indication: LUPUS NEPHRITIS
     Route: 041
     Dates: start: 20140313, end: 20140331
  2. MABTHERA [Suspect]
     Route: 065
     Dates: start: 2006
  3. CORTANCYL [Concomitant]
     Route: 048
  4. PLAQUENIL [Concomitant]
     Route: 048
  5. OMEPRAZOLE [Concomitant]
     Route: 048
  6. COVERSYL [Concomitant]
     Route: 048
  7. TAHOR [Concomitant]
     Route: 048
  8. COUMADINE [Concomitant]
     Route: 048
  9. OROCAL [Concomitant]
     Route: 048
  10. UVEDOSE [Concomitant]
     Route: 048
  11. NORSET [Concomitant]
     Route: 048
  12. MICROVAL [Concomitant]
     Route: 065
  13. DOLIPRANE [Concomitant]
     Route: 048

REACTIONS (2)
  - Hypersensitivity vasculitis [Recovering/Resolving]
  - Blood creatinine increased [Recovered/Resolved]
